FAERS Safety Report 13868621 (Version 4)
Quarter: 2017Q4

REPORT INFORMATION
  Report Type: Spontaneous
  Country: US (occurrence: US)
  Receive Date: 20170815
  Receipt Date: 20171009
  Transmission Date: 20180320
  Serious: No
  Sender: FDA-Public Use
  Company Number: US-PFIZER INC-2017347668

PATIENT
  Age: 47 Year
  Sex: Female
  Weight: 52.62 kg

DRUGS (1)
  1. XELJANZ XR [Suspect]
     Active Substance: TOFACITINIB CITRATE
     Indication: RHEUMATOID ARTHRITIS
     Dosage: 11 MG, DAILY
     Route: 048
     Dates: start: 201706

REACTIONS (5)
  - Peripheral coldness [Unknown]
  - Pain in extremity [Unknown]
  - Joint swelling [Unknown]
  - Musculoskeletal stiffness [Unknown]
  - Medication residue present [Unknown]

NARRATIVE: CASE EVENT DATE: 20170807
